FAERS Safety Report 5197609-7 (Version None)
Quarter: 2007Q1

REPORT INFORMATION
  Report Type: 
  Country: None (occurrence: None)
  Receive Date: 20070103
  Receipt Date: 20061128
  Transmission Date: 20070707
  Serious: Yes (Hospitalization)
  Sender: FDA-Public Use
  Company Number: US-PFIZER INC-2006142767

PATIENT
  Sex: Female
  Weight: 75.3 kg

DRUGS (2)
  1. BEXTRA [Suspect]
     Indication: OSTEONECROSIS
     Dates: start: 20030610, end: 20050403
  2. BEXTRA [Suspect]

REACTIONS (2)
  - CEREBROVASCULAR ACCIDENT [None]
  - TRANSIENT ISCHAEMIC ATTACK [None]
